FAERS Safety Report 4983564-9 (Version None)
Quarter: 2006Q2

REPORT INFORMATION
  Report Type: 
  Country: None (occurrence: None)
  Receive Date: 20060426
  Receipt Date: 20060317
  Transmission Date: 20061013
  Serious: Yes (Hospitalization)
  Sender: FDA-Public Use
  Company Number: GB-ROCHE-441414

PATIENT
  Age: 66 Year
  Sex: Female

DRUGS (4)
  1. XELODA [Suspect]
     Route: 065
     Dates: start: 20051219, end: 20060102
  2. DISOPYRAMIDE [Concomitant]
     Route: 048
  3. BENDROFLUMETHIAZIDE [Concomitant]
     Route: 048
  4. AMOXICILLIN [Concomitant]
     Route: 048

REACTIONS (9)
  - ANOREXIA [None]
  - CATARACT [None]
  - CONJUNCTIVITIS [None]
  - DEHYDRATION [None]
  - DIARRHOEA [None]
  - FATIGUE [None]
  - LISTLESS [None]
  - SKIN REACTION [None]
  - VOMITING [None]
